FAERS Safety Report 4320525-7 (Version None)
Quarter: 2004Q1

REPORT INFORMATION
  Report Type: 
  Country: None (occurrence: None)
  Receive Date: 20040322
  Receipt Date: 20040203
  Transmission Date: 20041129
  Serious: Yes (Death, Hospitalization)
  Sender: FDA-Public Use
  Company Number: 200410437FR

PATIENT
  Age: 58 Year
  Sex: Male

DRUGS (9)
  1. LASILIX 40 MG [Suspect]
     Route: 048
     Dates: start: 20030904
  2. PROZAC [Suspect]
     Route: 048
     Dates: start: 20030906
  3. ATARAX [Suspect]
     Route: 048
     Dates: start: 20030912
  4. HEXAQUINE [Suspect]
     Route: 048
     Dates: start: 20030925, end: 20031001
  5. SERESTA 50 MG [Suspect]
     Route: 048
     Dates: start: 20030904
  6. ALDACTONE 75 MG [Suspect]
     Route: 048
     Dates: start: 20030904
  7. MAG [Concomitant]
     Route: 048
     Dates: start: 20030925, end: 20031012
  8. VITAMIN B1 AND B6 [Concomitant]
     Route: 048
     Dates: start: 20030904
  9. VITAMINE B12 [Concomitant]
     Route: 048
     Dates: start: 20030904

REACTIONS (7)
  - DEATH [None]
  - DERMATITIS EXFOLIATIVE [None]
  - ERYTHEMA [None]
  - PSORIASIS [None]
  - PURPURA [None]
  - VITAMIN C DEFICIENCY [None]
  - ZINC DEFICIENCY [None]
